FAERS Safety Report 8022380-0 (Version None)
Quarter: 2012Q1

REPORT INFORMATION
  Report Type: 
  Country: None (occurrence: None)
  Receive Date: 20120104
  Receipt Date: 20111227
  Transmission Date: 20120608
  Serious: Yes (Hospitalization)
  Sender: FDA-Public Use
  Company Number: US-ACTELION-A-US2011-52349

PATIENT

DRUGS (2)
  1. TRACLEER [Suspect]
     Indication: PULMONARY ARTERIAL HYPERTENSION
     Dosage: UNK
     Route: 048
     Dates: start: 20080819
  2. REVATIO [Concomitant]

REACTIONS (6)
  - HAEMORRHAGE [None]
  - LIMB DISCOMFORT [None]
  - LEUKAEMIA [None]
  - STOMATITIS [None]
  - TRANSFUSION [None]
  - BLOOD IRON ABNORMAL [None]
